FAERS Safety Report 4608946-6 (Version None)
Quarter: 2005Q1

REPORT INFORMATION
  Report Type: 
  Country: None (occurrence: None)
  Receive Date: 20050311
  Receipt Date: 20050225
  Transmission Date: 20050727
  Serious: Yes (Other)
  Sender: FDA-Public Use
  Company Number: 2004-BP-01471BP

PATIENT
  Age: 29 Year
  Sex: Female

DRUGS (3)
  1. VIRAMUNE [Suspect]
     Indication: HIV INFECTION
     Dosage: 400 MG (200 MG), PO
     Route: 048
     Dates: start: 19991207, end: 20001013
  2. LAMIVUDINE [Suspect]
     Indication: HIV INFECTION
     Dosage: 300 MG, PO
     Route: 048
     Dates: start: 19991108, end: 20001013
  3. STAVUDINE [Suspect]
     Indication: HIV INFECTION
     Dosage: 400 MG, PO
     Route: 048
     Dates: start: 19991207, end: 20001013

REACTIONS (2)
  - ABORTION INDUCED [None]
  - DRUG EXPOSURE DURING PREGNANCY [None]
